FAERS Safety Report 10695070 (Version 1)
Quarter: 2015Q1

REPORT INFORMATION
  Report Type: Spontaneous
  Country: US (occurrence: None)
  Receive Date: 20150106
  Receipt Date: 20150106
  Transmission Date: 20150721
  Serious: Yes (Hospitalization)
  Sender: FDA-Public Use
  Company Number: None

PATIENT
  Age: 15 Year
  Sex: Male
  Weight: 69.3 kg

DRUGS (6)
  1. DEXAMETHASONE. [Suspect]
     Active Substance: DEXAMETHASONE
     Dates: end: 20141224
  2. ONCASPAR [Suspect]
     Active Substance: PEGASPARGASE
     Dosage: 9105 UNIT
     Dates: end: 20141215
  3. CYTARABINE. [Suspect]
     Active Substance: CYTARABINE
     Dates: end: 20141128
  4. METHOTREXATE [Suspect]
     Active Substance: METHOTREXATE
     Dates: end: 20141205
  5. DAUNORUBICIN [Suspect]
     Active Substance: DAUNORUBICIN
     Dates: end: 20141219
  6. VINCRISTINE SULFATE. [Suspect]
     Active Substance: VINCRISTINE SULFATE
     Dates: end: 20141219

REACTIONS (7)
  - Oedema genital [None]
  - Haematuria [None]
  - Hypoalbuminaemia [None]
  - Condition aggravated [None]
  - Hyponatraemia [None]
  - Proteinuria [None]
  - Oedema peripheral [None]

NARRATIVE: CASE EVENT DATE: 20141217
